FAERS Safety Report 5078293-X (Version None)
Quarter: 2006Q3

REPORT INFORMATION
  Report Type: 
  Country: None (occurrence: None)
  Receive Date: 20060811
  Receipt Date: 20060801
  Transmission Date: 20061208
  Serious: Yes (Death, Life-Threatening, Disabling, Other)
  Sender: FDA-Public Use
  Company Number: CA-MERCK-0608CAN00012

PATIENT
  Age: 56 Year
  Sex: Male

DRUGS (11)
  1. COZAAR [Concomitant]
     Indication: HYPERTENSION
     Route: 048
     Dates: start: 20051123, end: 20060102
  2. COZAAR [Concomitant]
     Route: 048
     Dates: start: 20060103, end: 20060403
  3. COZAAR [Concomitant]
     Route: 048
     Dates: start: 20060404, end: 20060425
  4. HYZAAR [Suspect]
     Indication: HYPERTENSION
     Route: 048
     Dates: start: 20060404, end: 20060425
  5. HYZAAR [Suspect]
     Route: 048
     Dates: start: 20060426
  6. DILANTIN [Concomitant]
     Indication: EPILEPSY
     Route: 065
     Dates: start: 20000203
  7. RISPERDAL [Concomitant]
     Indication: INSOMNIA
     Route: 065
     Dates: start: 20050907
  8. RISPERDAL [Concomitant]
     Indication: PANIC DISORDER
     Route: 065
     Dates: start: 20050907
  9. LORAZEPAM [Concomitant]
     Indication: TREMOR
     Route: 065
     Dates: start: 20050907
  10. LORAZEPAM [Concomitant]
     Indication: DRUG WITHDRAWAL SYNDROME
     Route: 065
     Dates: start: 20050907
  11. ALCOHOL [Concomitant]
     Route: 065

REACTIONS (2)
  - GENERAL SYMPTOM [None]
  - UNEVALUABLE EVENT [None]
